FAERS Safety Report 4845986-6 (Version None)
Quarter: 2005Q4

REPORT INFORMATION
  Report Type: 
  Country: None (occurrence: None)
  Receive Date: 20051206
  Receipt Date: 20051125
  Transmission Date: 20060501
  Serious: Yes (Hospitalization)
  Sender: FDA-Public Use
  Company Number: JP-JNJFOC-20050902644

PATIENT
  Sex: Female
  Weight: 62 kg

DRUGS (26)
  1. REMICADE [Suspect]
     Route: 042
  2. REMICADE [Suspect]
     Route: 042
  3. REMICADE [Suspect]
     Indication: RHEUMATOID ARTHRITIS
     Route: 042
  4. RIDAURA [Suspect]
     Indication: RHEUMATOID ARTHRITIS
     Route: 048
  5. PREDNISOLONE [Suspect]
     Indication: RHEUMATOID ARTHRITIS
     Route: 048
  6. AZULFIDINE EN-TABS [Suspect]
     Indication: RHEUMATOID ARTHRITIS
     Route: 048
  7. RINDERON [Concomitant]
     Indication: RHEUMATOID ARTHRITIS
     Route: 048
  8. VOLTAREN [Concomitant]
     Indication: RHEUMATOID ARTHRITIS
     Route: 048
  9. FOLIAMIN [Concomitant]
     Route: 048
  10. LEUCOVORIN [Concomitant]
     Route: 048
  11. CYTOTEC [Concomitant]
     Route: 048
  12. JUVELA NICOTINATE [Concomitant]
     Route: 048
  13. CYANOCOBALAMIN [Concomitant]
     Route: 048
  14. HALCION [Concomitant]
     Route: 048
  15. EVAMYL [Concomitant]
     Route: 048
  16. GASTER [Concomitant]
     Route: 048
  17. ALLOID G [Concomitant]
     Route: 048
  18. MYSLEE [Concomitant]
     Route: 048
  19. BENET [Concomitant]
     Route: 048
  20. FERROMIA [Concomitant]
     Route: 048
  21. ADRENAL HORMONE PREPARATIONS [Concomitant]
     Indication: RHEUMATOID ARTHRITIS
     Route: 048
  22. RHEUMATREX [Concomitant]
     Route: 048
  23. RHEUMATREX [Concomitant]
     Route: 048
  24. RHEUMATREX [Concomitant]
     Route: 048
  25. RHEUMATREX [Concomitant]
     Indication: RHEUMATOID ARTHRITIS
     Route: 048
  26. POLAPREZINC [Concomitant]
     Route: 048

REACTIONS (1)
  - TUBERCULOUS PLEURISY [None]
